FAERS Safety Report 7582376-X (Version None)
Quarter: 2011Q2

REPORT INFORMATION
  Report Type: 
  Country: None (occurrence: None)
  Receive Date: 20110630
  Receipt Date: 20110620
  Transmission Date: 20111010
  Serious: Yes (Other)
  Sender: FDA-Public Use
  Company Number: JP-JNJFOC-20110610341

PATIENT
  Age: 3 Month

DRUGS (1)
  1. LOPERAMIDE [Suspect]
     Indication: GASTROENTERITIS
     Dosage: 0.6 MG DIVIDED INTO 3 DOSES PER DAY
     Route: 048

REACTIONS (4)
  - DRY MOUTH [None]
  - HYPOTONIA [None]
  - MIOSIS [None]
  - DEPRESSED LEVEL OF CONSCIOUSNESS [None]
